FAERS Safety Report 24103590 (Version 3)
Quarter: 2025Q4

REPORT INFORMATION
  Report Type: Spontaneous
  Country: JP (occurrence: JP)
  Receive Date: 20240717
  Receipt Date: 20251222
  Transmission Date: 20260118
  Serious: Yes (Other)
  Sender: ELI LILLY AND COMPANY
  Company Number: JP-ELI_LILLY_AND_COMPANY-JP202407008053

PATIENT
  Age: 74 Year
  Sex: Male

DRUGS (2)
  1. CYRAMZA [Suspect]
     Active Substance: RAMUCIRUMAB
     Indication: Adenocarcinoma gastric stage IV
     Dosage: UNK
     Route: 041
     Dates: start: 2019
  2. PACLITAXEL [Suspect]
     Active Substance: PACLITAXEL
     Indication: Adenocarcinoma gastric stage IV
     Dosage: UNK
     Route: 065
     Dates: start: 2019

REACTIONS (4)
  - Febrile neutropenia [Unknown]
  - Myelosuppression [Unknown]
  - Malignant neoplasm progression [Recovering/Resolving]
  - Feeding disorder [Unknown]
